FAERS Safety Report 18893340 (Version 1)
Quarter: 2021Q1

REPORT INFORMATION
  Report Type: Spontaneous
  Country: US (occurrence: US)
  Receive Date: 20210215
  Receipt Date: 20210215
  Transmission Date: 20210420
  Serious: Yes (Other)
  Sender: FDA-Public Use
  Company Number: US-ROCHE-2764978

PATIENT
  Age: 53 Year
  Sex: Female
  Weight: 56.7 kg

DRUGS (3)
  1. HERCEPTIN [Suspect]
     Active Substance: TRASTUZUMAB
     Indication: BREAST CANCER
     Dosage: ONGOING: NO
     Route: 041
     Dates: start: 20190401, end: 20201217
  2. PERJETA [Suspect]
     Active Substance: PERTUZUMAB
     Indication: BREAST CANCER
     Dosage: ONGOING: NO
     Route: 042
     Dates: start: 20190401, end: 20191007
  3. NEULASTA [Concomitant]
     Active Substance: PEGFILGRASTIM

REACTIONS (2)
  - Urticaria chronic [Not Recovered/Not Resolved]
  - Angioedema [Unknown]

NARRATIVE: CASE EVENT DATE: 20201203
